FAERS Safety Report 5661442-X (Version None)
Quarter: 2008Q1

REPORT INFORMATION
  Report Type: 
  Country: None (occurrence: None)
  Receive Date: 20080311
  Receipt Date: 20080228
  Transmission Date: 20080703
  Serious: Yes (Other)
  Sender: FDA-Public Use
  Company Number: CL-PFIZER INC-2008020654

PATIENT
  Age: 26 Year
  Sex: Female
  Weight: 80 kg

DRUGS (5)
  1. CHANTIX [Suspect]
     Indication: EX-SMOKER
     Route: 048
     Dates: start: 20080204, end: 20080225
  2. RISPERDAL [Concomitant]
  3. TRIHEXYPHENIDYL HCL [Concomitant]
  4. CISORDINOL [Concomitant]
  5. GLAFORNIL [Concomitant]

REACTIONS (2)
  - BALANCE DISORDER [None]
  - DRUG TOXICITY [None]
